FAERS Safety Report 9250741 (Version 1)
Quarter: 2013Q1

REPORT INFORMATION
  Report Type: Spontaneous
  Country: US (occurrence: None)
  Receive Date: 20130305
  Receipt Date: 20130305
  Transmission Date: 20140127
  Serious: Yes (Hospitalization)
  Sender: FDA-Public Use
  Company Number: 163-21880-12082469

PATIENT
  Age: 73 Year
  Sex: Female

DRUGS (6)
  1. REVLIMID (LENALIDOMIDE) (25 MILLIGRAM CAPSULES) [Suspect]
     Indication: PLASMA CELL MYELOMA
     Route: 048
     Dates: start: 20120803, end: 20120809
  2. FISH OIL (FISH OIL) [Concomitant]
  3. LIPITOR (ATORVASTATIN) [Concomitant]
  4. ATENOLOL (ATENOLOL) [Concomitant]
  5. VELCADE [Concomitant]
  6. ZOMETA (ZOLEDRRONIC ACID) [Concomitant]

REACTIONS (1)
  - Renal failure [None]
